FAERS Safety Report 11986379 (Version 3)
Quarter: 2016Q4

REPORT INFORMATION
  Report Type: Spontaneous
  Country: US (occurrence: US)
  Receive Date: 20160202
  Receipt Date: 20161028
  Transmission Date: 20170206
  Serious: Yes (Disabling, Other)
  Sender: FDA-Public Use
  Company Number: US-WEST-WARD PHARMACEUTICALS CORP.-US-H14001-16-00164

PATIENT
  Age: 37 Year
  Sex: Male

DRUGS (4)
  1. DILAUDID [Suspect]
     Active Substance: HYDROMORPHONE HYDROCHLORIDE
     Indication: PRODUCT USED FOR UNKNOWN INDICATION
     Route: 065
  2. INFUMORPH [Suspect]
     Active Substance: MORPHINE SULFATE
     Indication: PAIN
  3. MORPHINE [Suspect]
     Active Substance: MORPHINE
     Indication: PRODUCT USED FOR UNKNOWN INDICATION
     Route: 065
  4. INFUMORPH [Suspect]
     Active Substance: MORPHINE SULFATE
     Indication: LUMBAR RADICULOPATHY
     Dosage: 2.0 - 15 MG/ML
     Route: 037

REACTIONS (10)
  - Pain [Unknown]
  - Paralysis [Unknown]
  - Radiculopathy [Unknown]
  - Decreased interest [Unknown]
  - Catheter site extravasation [Unknown]
  - Insomnia [Unknown]
  - Underdose [Unknown]
  - Drug withdrawal syndrome [Recovered/Resolved]
  - Condition aggravated [Unknown]
  - Lethargy [Unknown]

NARRATIVE: CASE EVENT DATE: 201512
